FAERS Safety Report 25680817 (Version 1)
Quarter: 2025Q3

REPORT INFORMATION
  Report Type: Report from Study
  Country: PK (occurrence: PK)
  Receive Date: 20250814
  Receipt Date: 20250814
  Transmission Date: 20251021
  Serious: Yes (Other)
  Sender: ROCHE
  Company Number: PK-ROCHE-10000362930

PATIENT
  Age: 62 Year
  Sex: Female

DRUGS (2)
  1. PERTUZUMAB [Suspect]
     Active Substance: PERTUZUMAB
     Indication: Breast cancer
     Dosage: SOLUTION
     Route: 042
     Dates: start: 20250206, end: 20250502
  2. TRASTUZUMAB [Suspect]
     Active Substance: TRASTUZUMAB
     Indication: Breast cancer
     Dosage: SOLUTION
     Route: 058
     Dates: start: 20250206, end: 20250502

REACTIONS (1)
  - Surgery [Unknown]
